FAERS Safety Report 9056641 (Version 2)
Quarter: 2013Q1

REPORT INFORMATION
  Report Type: Spontaneous
  Country: US (occurrence: US)
  Receive Date: 20130204
  Receipt Date: 20130306
  Transmission Date: 20140127
  Serious: Yes (Death, Hospitalization, Other)
  Sender: FDA-Public Use
  Company Number: US-B.I. PHARMACEUTICALS,INC./RIDGEFIELD-2013-BI-02467BP

PATIENT
  Age: 86 Year
  Sex: Male

DRUGS (1)
  1. PRADAXA [Suspect]

REACTIONS (5)
  - Cardiac arrest [Fatal]
  - Haemorrhage [Fatal]
  - Contusion [Unknown]
  - Fall [Recovered/Resolved]
  - Anaemia [Unknown]
